FAERS Safety Report 7649688-2 (Version None)
Quarter: 2011Q3

REPORT INFORMATION
  Report Type: 
  Country: None (occurrence: None)
  Receive Date: 20110802
  Receipt Date: 20110725
  Transmission Date: 20111222
  Serious: Yes (Hospitalization)
  Sender: FDA-Public Use
  Company Number: JP-AMGEN-JPNCT2011038695

PATIENT
  Age: 69 Year
  Sex: Female
  Weight: 47 kg

DRUGS (5)
  1. ANTEBATE [Concomitant]
     Indication: URTICARIA
     Dosage: ADEQUATE DOSE
     Route: 062
     Dates: start: 20110601, end: 20110603
  2. CALCICHEW D3 [Concomitant]
     Indication: OSTEOPOROSIS
     Route: 048
     Dates: start: 20090127
  3. DENOSUMAB [Suspect]
     Dosage: 60 MG, Q6MO
     Route: 058
     Dates: start: 20110224
  4. SENNARIDE [Concomitant]
     Indication: CONSTIPATION
     Dosage: UNK
     Route: 048
  5. LAMISIL [Concomitant]
     Indication: TINEA INFECTION
     Dosage: ADEQUATE DOSE
     Route: 062

REACTIONS (1)
  - COLONIC POLYP [None]
